FAERS Safety Report 8176379-4 (Version None)
Quarter: 2012Q1

REPORT INFORMATION
  Report Type: 
  Country: None (occurrence: None)
  Receive Date: 20120227
  Receipt Date: 20120227
  Transmission Date: 20120608
  Serious: Yes (Other)
  Sender: FDA-Public Use
  Company Number: None

PATIENT
  Sex: Male

DRUGS (1)
  1. ZYPREXA [Suspect]
     Indication: BIPOLAR DISORDER
     Dosage: 10 MG PO QID
     Route: 048

REACTIONS (3)
  - ABNORMAL BEHAVIOUR [None]
  - INSOMNIA [None]
  - PRODUCT SUBSTITUTION ISSUE [None]
